FAERS Safety Report 21503605 (Version 4)
Quarter: 2024Q1

REPORT INFORMATION
  Report Type: Report from Study
  Country: US (occurrence: US)
  Receive Date: 20221025
  Receipt Date: 20240104
  Transmission Date: 20240410
  Serious: Yes (Hospitalization, Other)
  Sender: FDA-Public Use
  Company Number: US-NOVARTISPH-NVSC2022US238448

PATIENT
  Sex: Female

DRUGS (2)
  1. KISQALI [Suspect]
     Active Substance: RIBOCICLIB
     Indication: Breast cancer
     Dosage: 600 MG, QD
     Route: 048
  2. ENTRESTO [Suspect]
     Active Substance: SACUBITRIL\VALSARTAN
     Indication: Product used for unknown indication
     Dosage: UNK
     Route: 065

REACTIONS (12)
  - Nephrolithiasis [Unknown]
  - Multiple fractures [Unknown]
  - Seasonal allergy [Recovering/Resolving]
  - Electrocardiogram abnormal [Recovered/Resolved]
  - Asthma [Recovered/Resolved]
  - Taste disorder [Recovered/Resolved]
  - Illness [Unknown]
  - Hypersensitivity [Unknown]
  - Product distribution issue [Not Recovered/Not Resolved]
  - Decreased appetite [Recovered/Resolved]
  - Sinusitis [Recovered/Resolved]
  - Cardiac disorder [Unknown]
